FAERS Safety Report 4477594-3 (Version None)
Quarter: 2004Q4

REPORT INFORMATION
  Report Type: 
  Country: None (occurrence: None)
  Receive Date: 20041013
  Receipt Date: 20040923
  Transmission Date: 20050328
  Serious: Yes (Death, Other)
  Sender: FDA-Public Use
  Company Number: EWC040639753

PATIENT
  Age: 39 Year
  Sex: Male
  Weight: 120 kg

DRUGS (7)
  1. ZYPREXA-RAPID-ACTING (OLANZAPINE) [Suspect]
     Indication: AGITATION
     Dosage: 10 MG
     Route: 030
     Dates: start: 20040609, end: 20040609
  2. RISPERDAL CONSTA [Concomitant]
  3. CLONAZEPAM [Concomitant]
  4. RISPERDAL [Concomitant]
  5. CLORAZEPATE DIPOTASSIUM [Concomitant]
  6. DEPAKENE [Concomitant]
  7. HALOPERIDOL [Concomitant]

REACTIONS (5)
  - CARDIOMEGALY [None]
  - LOGORRHOEA [None]
  - RESTLESSNESS [None]
  - SEDATION [None]
  - SUDDEN CARDIAC DEATH [None]
